FAERS Safety Report 23961213 (Version 1)
Quarter: 2024Q2

REPORT INFORMATION
  Report Type: Spontaneous
  Country: FR (occurrence: FR)
  Receive Date: 20240611
  Receipt Date: 20240611
  Transmission Date: 20240715
  Serious: Yes (Hospitalization, Other)
  Sender: FDA-Public Use
  Company Number: FR-ROCHE-3566175

PATIENT
  Age: 57 Year
  Sex: Male
  Weight: 74.5 kg

DRUGS (27)
  1. DOXORUBICIN [Suspect]
     Active Substance: DOXORUBICIN
     Indication: Richter^s syndrome
     Dosage: C1D1
     Route: 042
     Dates: start: 20240330
  2. DOXORUBICIN [Suspect]
     Active Substance: DOXORUBICIN
     Dosage: C1D5
     Route: 042
     Dates: start: 20240403
  3. DOXORUBICIN [Suspect]
     Active Substance: DOXORUBICIN
     Dosage: C2D5
     Route: 042
     Dates: start: 20240422
  4. DOXORUBICIN [Suspect]
     Active Substance: DOXORUBICIN
     Dosage: C2D5
     Route: 042
     Dates: start: 20240426
  5. PREDNISONE [Suspect]
     Active Substance: PREDNISONE
     Indication: Richter^s syndrome
     Dosage: 60 MILLIGRAM/SQ. METER
     Route: 048
     Dates: start: 20240330
  6. PREDNISONE [Suspect]
     Active Substance: PREDNISONE
     Dosage: C1D5
     Route: 048
     Dates: start: 20240403
  7. PREDNISONE [Suspect]
     Active Substance: PREDNISONE
     Dosage: C2D5
     Route: 048
     Dates: start: 20240422
  8. PREDNISONE [Suspect]
     Active Substance: PREDNISONE
     Dosage: C2D5
     Route: 048
     Dates: start: 20240426
  9. CYCLOPHOSPHAMIDE [Suspect]
     Active Substance: CYCLOPHOSPHAMIDE
     Indication: Richter^s syndrome
     Dosage: C1D1
     Route: 042
     Dates: start: 20240330
  10. CYCLOPHOSPHAMIDE [Suspect]
     Active Substance: CYCLOPHOSPHAMIDE
     Dosage: C1 D5
     Route: 042
     Dates: start: 20240403
  11. CYCLOPHOSPHAMIDE [Suspect]
     Active Substance: CYCLOPHOSPHAMIDE
     Dosage: C2 D5
     Route: 042
     Dates: start: 20240422
  12. CYCLOPHOSPHAMIDE [Suspect]
     Active Substance: CYCLOPHOSPHAMIDE
     Dosage: C2 D5
     Route: 042
     Dates: start: 20240426
  13. GLOFITAMAB [Suspect]
     Active Substance: GLOFITAMAB
     Indication: Richter^s syndrome
     Dosage: C2D28
     Route: 042
     Dates: start: 20240330
  14. GLOFITAMAB [Suspect]
     Active Substance: GLOFITAMAB
     Dosage: C2D28
     Route: 042
     Dates: start: 20240504
  15. OBINUTUZUMAB [Suspect]
     Active Substance: OBINUTUZUMAB
     Indication: Richter^s syndrome
     Dosage: 1000 MILLIGRAM (SINGLE DOSE C2D1)
     Route: 042
     Dates: start: 20240422
  16. RITUXIMAB [Suspect]
     Active Substance: RITUXIMAB
     Indication: Richter^s syndrome
     Dosage: 375 MILLIGRAM/SQ. METER (CYCLE 1 DAY 1, AS PER PROTOCOL)
     Route: 042
     Dates: start: 20240330
  17. RITUXIMAB [Suspect]
     Active Substance: RITUXIMAB
     Dosage: CYCLE 1 DAY 5,
     Route: 042
     Dates: start: 20240503
  18. VINCRISTINE [Suspect]
     Active Substance: VINCRISTINE
     Indication: Richter^s syndrome
     Dosage: C1D1
     Route: 042
     Dates: start: 20240330
  19. VINCRISTINE [Suspect]
     Active Substance: VINCRISTINE
     Dosage: C1D5
     Route: 042
     Dates: start: 20240403
  20. VINCRISTINE [Suspect]
     Active Substance: VINCRISTINE
     Dosage: C2D5
     Route: 042
     Dates: start: 20240422
  21. VINCRISTINE [Suspect]
     Active Substance: VINCRISTINE
     Dosage: C2D5
     Route: 042
     Dates: start: 20240426
  22. ONDANSETRON [Concomitant]
     Active Substance: ONDANSETRON
     Indication: Product used for unknown indication
     Dosage: 8 MILLIGRAM, TWO TIMES A DAY
     Route: 065
  23. VALACYCLOVIR HYDROCHLORIDE [Concomitant]
     Active Substance: VALACYCLOVIR HYDROCHLORIDE
     Indication: Product used for unknown indication
     Dosage: 500 MILLIGRAM, TWO TIMES A DAY
     Route: 065
     Dates: start: 20240330
  24. EMEND [Concomitant]
     Active Substance: APREPITANT
     Indication: Product used for unknown indication
     Dosage: 125 MILLIGRAM
     Route: 065
  25. SOTALOL [Concomitant]
     Active Substance: SOTALOL
     Indication: Product used for unknown indication
     Dosage: 80 MILLIGRAM, TWO TIMES A DAY
     Route: 065
  26. SODIUM BICARBONATE [Concomitant]
     Active Substance: SODIUM BICARBONATE
     Indication: Product used for unknown indication
     Dosage: UNK, FOUR TIMES/DAY
     Route: 065
  27. BACTRIM [Concomitant]
     Active Substance: SULFAMETHOXAZOLE\TRIMETHOPRIM
     Indication: Product used for unknown indication
     Dosage: 800 MILLIGRAM, 0.33 WEEK
     Route: 065
     Dates: start: 20240330

REACTIONS (1)
  - Cytokine release syndrome [Not Recovered/Not Resolved]

NARRATIVE: CASE EVENT DATE: 20240504
